FAERS Safety Report 6960891-7 (Version None)
Quarter: 2010Q3

REPORT INFORMATION
  Report Type: 
  Country: None (occurrence: None)
  Receive Date: 20100901
  Receipt Date: 20100820
  Transmission Date: 20110219
  Serious: Yes (Other)
  Sender: FDA-Public Use
  Company Number: US-PFIZER INC-2010105334

PATIENT
  Sex: Male

DRUGS (4)
  1. NEURONTIN [Suspect]
  2. LYRICA [Suspect]
     Dosage: 50 MG, 3X/DAY
  3. TRAMADOL HYDROCHLORIDE [Suspect]
  4. LEVBID [Suspect]

REACTIONS (10)
  - COUGH [None]
  - DYSKINESIA [None]
  - EMOTIONAL DISTRESS [None]
  - FEAR [None]
  - INFLUENZA LIKE ILLNESS [None]
  - MUSCULOSKELETAL CHEST PAIN [None]
  - NAUSEA [None]
  - PANIC REACTION [None]
  - TREMOR [None]
  - WITHDRAWAL SYNDROME [None]
